FAERS Safety Report 16179622 (Version 1)
Quarter: 2019Q2

REPORT INFORMATION
  Report Type: Spontaneous
  Country: US (occurrence: US)
  Receive Date: 20190410
  Receipt Date: 20190410
  Transmission Date: 20190711
  Serious: Yes (Other)
  Sender: FDA-Public Use
  Company Number: US-BAYER-2019-071898

PATIENT
  Age: 81 Year
  Sex: Female
  Weight: 80 kg

DRUGS (2)
  1. BAYER ASPIRIN [Suspect]
     Active Substance: ASPIRIN
  2. ELIQUIS [Interacting]
     Active Substance: APIXABAN
     Dosage: 2.5 MG, BID

REACTIONS (2)
  - Labelled drug-drug interaction medication error [None]
  - Gastrointestinal haemorrhage [Unknown]
